FAERS Safety Report 11450619 (Version 1)
Quarter: 2015Q3

REPORT INFORMATION
  Report Type: Report from Study
  Country: DE (occurrence: DE)
  Receive Date: 20150903
  Receipt Date: 20150903
  Transmission Date: 20151125
  Serious: Yes (Death)
  Sender: FDA-Public Use
  Company Number: DE-ACCORD-033433

PATIENT
  Age: 53 Year
  Sex: Female

DRUGS (2)
  1. AMINOSALICYLATE CALCIUM/AMINOSALICYLATE CALCIUM ALUMIN/AMINOSALICYLATE SODIUM/AMINOSALICYLIC ACID [Concomitant]
     Indication: INFLAMMATORY BOWEL DISEASE
     Dosage: 5-ASA
  2. TACROLIMUS. [Suspect]
     Active Substance: TACROLIMUS
     Indication: LIVER TRANSPLANT

REACTIONS (1)
  - Organ failure [Fatal]
